FAERS Safety Report 11909168 (Version 12)
Quarter: 2016Q4

REPORT INFORMATION
  Report Type: Report from Study
  Country: CA (occurrence: CA)
  Receive Date: 20160112
  Receipt Date: 20161227
  Transmission Date: 20170206
  Serious: Yes (Other)
  Sender: FDA-Public Use
  Company Number: CA-ROCHE-1627851

PATIENT
  Age: 63 Year
  Sex: Female

DRUGS (8)
  1. ARAVA [Concomitant]
     Active Substance: LEFLUNOMIDE
  2. SYNTHROID [Concomitant]
     Active Substance: LEVOTHYROXINE SODIUM
  3. D-TABS [Concomitant]
     Active Substance: CHOLECALCIFEROL
  4. PREDNISONE. [Concomitant]
     Active Substance: PREDNISONE
  5. ACTEMRA [Suspect]
     Active Substance: TOCILIZUMAB
     Indication: RHEUMATOID ARTHRITIS
     Route: 042
     Dates: start: 20150827, end: 20161202
  6. PLAQUENIL [Concomitant]
     Active Substance: HYDROXYCHLOROQUINE SULFATE
  7. RISEDRONATE [Concomitant]
     Active Substance: RISEDRONATE SODIUM
  8. ACTEMRA [Suspect]
     Active Substance: TOCILIZUMAB
     Route: 042
     Dates: start: 20151123

REACTIONS (10)
  - Blood pressure increased [Unknown]
  - Oedema peripheral [Recovering/Resolving]
  - Bronchitis [Unknown]
  - Joint swelling [Not Recovered/Not Resolved]
  - Retinal detachment [Recovered/Resolved]
  - Drug ineffective [Unknown]
  - Vitreous floaters [Unknown]
  - Lumbar spinal stenosis [Unknown]
  - Osteoarthritis [Not Recovered/Not Resolved]
  - Blood pressure systolic increased [Unknown]

NARRATIVE: CASE EVENT DATE: 20150827
